FAERS Safety Report 6422295-5 (Version None)
Quarter: 2009Q4

REPORT INFORMATION
  Report Type: 
  Country: None (occurrence: None)
  Receive Date: 20091030
  Receipt Date: 20091020
  Transmission Date: 20100525
  Serious: Yes (Hospitalization)
  Sender: FDA-Public Use
  Company Number: SE-PFIZER INC-2009285516

PATIENT
  Age: 24 Year

DRUGS (5)
  1. ZELDOX [Suspect]
     Dosage: UNK
     Route: 048
     Dates: start: 20090911
  2. EFFEXOR [Suspect]
     Indication: DEPRESSION
     Dosage: 225 MG, 1X/DAY
     Route: 048
  3. PROPAVAN [Concomitant]
  4. STESOLID [Concomitant]
  5. STILNOCT [Concomitant]

REACTIONS (1)
  - MUSCLE SPASMS [None]
